FAERS Safety Report 13981371 (Version 1)
Quarter: 2017Q3

REPORT INFORMATION
  Report Type: Spontaneous
  Country: US (occurrence: US)
  Receive Date: 20170915
  Receipt Date: 20170915
  Transmission Date: 20171128
  Serious: No
  Sender: FDA-Public Use
  Company Number: None

PATIENT
  Age: 29 Year
  Sex: Female
  Weight: 45 kg

DRUGS (6)
  1. ALLEGRA [Concomitant]
     Active Substance: FEXOFENADINE HYDROCHLORIDE
  2. MIRENA [Concomitant]
     Active Substance: LEVONORGESTREL
  3. ELIDEL [Suspect]
     Active Substance: PIMECROLIMUS
     Indication: RASH
     Route: 061
     Dates: start: 20170906, end: 20170912
  4. SINGULAIR [Concomitant]
     Active Substance: MONTELUKAST SODIUM
  5. FLUNISOLIDE. [Concomitant]
     Active Substance: FLUNISOLIDE
  6. VITAMIN D [Concomitant]
     Active Substance: CHOLECALCIFEROL

REACTIONS (6)
  - Chills [None]
  - Pruritus [None]
  - Oropharyngeal pain [None]
  - Feeling hot [None]
  - Cough [None]
  - Feeling of body temperature change [None]

NARRATIVE: CASE EVENT DATE: 20170910
